FAERS Safety Report 9901216 (Version 6)
Quarter: 2017Q4

REPORT INFORMATION
  Report Type: Spontaneous
  Country: JP (occurrence: JP)
  Receive Date: 20140217
  Receipt Date: 20171025
  Transmission Date: 20180321
  Serious: Yes (Hospitalization, Other)
  Sender: FDA-Public Use
  Company Number: JP-009507513-1402JPN005603

PATIENT
  Age: 18 Month
  Sex: Female

DRUGS (4)
  1. DIAZOXIDE CAPSULES 25 MG ^MSD^ [Suspect]
     Active Substance: DIAZOXIDE
     Dosage: 7.5 MG/KG, UNK
     Route: 048
  2. DIAZOXIDE CAPSULES 25 MG ^MSD^ [Suspect]
     Active Substance: DIAZOXIDE
     Dosage: 9 MG/KG, UNK
     Route: 048
  3. DIAZOXIDE CAPSULES 25 MG ^MSD^ [Suspect]
     Active Substance: DIAZOXIDE
     Dosage: 3 MG/KG, UNK
     Route: 048
  4. DIAZOXIDE CAPSULES 25 MG ^MSD^ [Suspect]
     Active Substance: DIAZOXIDE
     Indication: HYPERINSULINAEMIC HYPOGLYCAEMIA
     Dosage: 5 MG/KG, UNK
     Route: 048

REACTIONS (1)
  - Neutropenia [Recovered/Resolved]
